FAERS Safety Report 18543500 (Version 1)
Quarter: 2020Q4

REPORT INFORMATION
  Report Type: Spontaneous
  Country: CN (occurrence: CN)
  Receive Date: 20201124
  Receipt Date: 20201124
  Transmission Date: 20210114
  Serious: Yes (Other)
  Sender: FDA-Public Use
  Company Number: CN-BAXTER-2020BAX023484

PATIENT
  Age: 63 Year
  Sex: Female
  Weight: 62 kg

DRUGS (3)
  1. GASTRODIN. [Suspect]
     Active Substance: GASTRODIN
     Indication: VERTIGO
     Route: 041
     Dates: start: 20201104, end: 20201104
  2. 20% MANNITOL INJECTION [Suspect]
     Active Substance: MANNITOL
     Indication: VERTIGO
     Route: 041
     Dates: start: 20201104, end: 20201104
  3. 0.9% SODIUM CHLORIDE INJECTION [Suspect]
     Active Substance: SODIUM CHLORIDE
     Indication: MEDICATION DILUTION
     Dosage: GIVEN ALONG WITH GASTRODIN INJECTION
     Route: 041
     Dates: start: 20201104, end: 20201104

REACTIONS (3)
  - Palpitations [Recovered/Resolved]
  - Panic reaction [Recovered/Resolved]
  - Chest discomfort [Recovered/Resolved]

NARRATIVE: CASE EVENT DATE: 20201104
